FAERS Safety Report 17108763 (Version 1)
Quarter: 2019Q4

REPORT INFORMATION
  Report Type: Spontaneous
  Country: LU (occurrence: LU)
  Receive Date: 20191204
  Receipt Date: 20191204
  Transmission Date: 20200122
  Serious: Yes (Other)
  Sender: FDA-Public Use
  Company Number: LU-SA-2019SA328612

PATIENT
  Age: 58 Year
  Sex: Female
  Weight: 75 kg

DRUGS (8)
  1. IRINOTECAN [Suspect]
     Active Substance: IRINOTECAN
     Indication: COLON CANCER
     Dosage: 342.59 MG, QCY
     Route: 041
     Dates: start: 20191104, end: 20191104
  2. METHYLPREDNISOLONE HYDROGEN SUCCINATE [Suspect]
     Active Substance: METHYLPREDNISOLONE HEMISUCCINATE
     Indication: PREMEDICATION
     Dosage: 125 MG, QCY
     Route: 042
     Dates: start: 20191104, end: 20191104
  3. APREPITANT. [Suspect]
     Active Substance: APREPITANT
     Indication: PREMEDICATION
     Dosage: 125 MG, QCY
     Route: 048
     Dates: start: 20191104, end: 20191104
  4. CALCIUM FOLINATE [Suspect]
     Active Substance: LEUCOVORIN CALCIUM
     Indication: COLON CANCER
     Dosage: 761.31 MG, QCY
     Route: 041
     Dates: start: 20191104, end: 20191104
  5. ONDANSETRON [Suspect]
     Active Substance: ONDANSETRON
     Indication: PREMEDICATION
     Dosage: 8 MG, QCY
     Route: 042
     Dates: start: 20191104, end: 20191104
  6. ATROPINE SULFATE. [Suspect]
     Active Substance: ATROPINE SULFATE
     Indication: PREMEDICATION
     Dosage: 0.25 MG, QCY
     Route: 058
     Dates: start: 20191104, end: 20191104
  7. ELOXATIN [Suspect]
     Active Substance: OXALIPLATIN
     Indication: COLON CANCER
     Dosage: 161.78 MG, QCY
     Route: 041
     Dates: start: 20191104, end: 20191104
  8. DEXAMETHASONE. [Suspect]
     Active Substance: DEXAMETHASONE
     Indication: PREMEDICATION
     Dosage: 8 MG, QCY
     Route: 042
     Dates: start: 20191104, end: 20191104

REACTIONS (5)
  - Paraesthesia oral [Recovered/Resolved]
  - Feeling hot [Recovered/Resolved]
  - Blood pressure increased [Recovered/Resolved]
  - Asthenia [Recovered/Resolved]
  - Dysarthria [Recovered/Resolved]

NARRATIVE: CASE EVENT DATE: 20191104
